FAERS Safety Report 6158919-X (Version None)
Quarter: 2009Q2

REPORT INFORMATION
  Report Type: 
  Country: None (occurrence: None)
  Receive Date: 20090417
  Receipt Date: 20090415
  Transmission Date: 20091009
  Serious: Yes (Other)
  Sender: FDA-Public Use
  Company Number: ES-MERCK-0904USA01209

PATIENT
  Age: 68 Year
  Sex: Male

DRUGS (4)
  1. INVANZ [Suspect]
     Route: 065
     Dates: start: 20070801
  2. PRIMAXIN [Suspect]
     Route: 065
     Dates: start: 20070819
  3. PIPERACILLIN SODIUM AND TAZOBACTAM SODIUM [Concomitant]
     Route: 065
     Dates: end: 20070801
  4. AMIKACIN [Concomitant]
     Route: 065
     Dates: end: 20070801

REACTIONS (6)
  - ANAEMIA [None]
  - GASTROINTESTINAL FISTULA [None]
  - HYPOTENSION [None]
  - RESPIRATORY DISORDER [None]
  - SYSTEMIC INFLAMMATORY RESPONSE SYNDROME [None]
  - TACHYCARDIA [None]
